FAERS Safety Report 23632735 (Version 1)
Quarter: 2024Q1

REPORT INFORMATION
  Report Type: Report from Study
  Country: US (occurrence: US)
  Receive Date: 20240314
  Receipt Date: 20240314
  Transmission Date: 20240409
  Serious: Yes (Hospitalization)
  Sender: FDA-Public Use
  Company Number: US-ARGENX-2023-ARGX-US000356

PATIENT

DRUGS (1)
  1. VYVGART [Suspect]
     Active Substance: EFGARTIGIMOD ALFA-FCAB
     Indication: Product used for unknown indication
     Dosage: UNK
     Route: 042

REACTIONS (7)
  - Hospitalisation [Recovering/Resolving]
  - Blood disorder [Unknown]
  - Fall [Recovering/Resolving]
  - COVID-19 [Unknown]
  - Fall [Unknown]
  - Back injury [Unknown]
  - Unevaluable event [Unknown]
